FAERS Safety Report 15641077 (Version 1)
Quarter: 2018Q4

REPORT INFORMATION
  Report Type: Other
  Country: US (occurrence: US)
  Receive Date: 20181120
  Receipt Date: 20181120
  Transmission Date: 20190205
  Serious: No
  Sender: FDA-Public Use
  Company Number: US-LEADIANT BIOSCIENCES INC-2018STPI000483

PATIENT
  Sex: Female

DRUGS (9)
  1. CALCITROL                          /00508501/ [Concomitant]
     Active Substance: CALCIUM CARBONATE\ERGOCALCIFEROL\RETINOL
  2. FERROUS SULFATE. [Concomitant]
     Active Substance: FERROUS SULFATE
  3. LEVOTHYROXINE. [Concomitant]
     Active Substance: LEVOTHYROXINE
  4. POTASSIUM [Concomitant]
     Active Substance: POTASSIUM
  5. CYSTAGON [Concomitant]
     Active Substance: CYSTEAMINE BITARTRATE
  6. K PHOS NEUTRAL [Concomitant]
     Active Substance: POTASSIUM PHOSPHATE, MONOBASIC\SODIUM PHOSPHATE, DIBASIC, ANHYDROUS\SODIUM PHOSPHATE, MONOBASIC, MONOHYDRATE
  7. RANITIDINE. [Concomitant]
     Active Substance: RANITIDINE
  8. CYSTARAN [Suspect]
     Active Substance: CYSTEAMINE HYDROCHLORIDE
     Indication: CORNEAL DEPOSITS
     Dosage: 1 GTT, EVERY 2 HOURS WHILE AWAKE
     Route: 047
     Dates: start: 20180508
  9. SODIUM CITRATE. [Concomitant]
     Active Substance: SODIUM CITRATE

REACTIONS (1)
  - Lacrimation increased [Not Recovered/Not Resolved]
